FAERS Safety Report 17541009 (Version 2)
Quarter: 2020Q1

REPORT INFORMATION
  Report Type: Spontaneous
  Country: US (occurrence: US)
  Receive Date: 20200313
  Receipt Date: 20200319
  Transmission Date: 20200409
  Serious: No
  Sender: FDA-Public Use
  Company Number: US-009507513-2003USA004772

PATIENT
  Age: 24 Year
  Sex: Female

DRUGS (1)
  1. NEXPLANON [Suspect]
     Active Substance: ETONOGESTREL
     Indication: CONTRACEPTION
     Dosage: 1 IMPLANT, UNK
     Route: 059
     Dates: start: 20200309

REACTIONS (5)
  - Diarrhoea [Recovered/Resolved]
  - Pyrexia [Recovering/Resolving]
  - Implant site swelling [Recovering/Resolving]
  - Implant site bruising [Recovering/Resolving]
  - Implant site pain [Recovering/Resolving]

NARRATIVE: CASE EVENT DATE: 202003
